FAERS Safety Report 5716675-0 (Version None)
Quarter: 2008Q2

REPORT INFORMATION
  Report Type: 
  Country: None (occurrence: None)
  Receive Date: 20080424
  Receipt Date: 20070531
  Transmission Date: 20081010
  Serious: No
  Sender: FDA-Public Use
  Company Number: US-BAYER-200710470BWH

PATIENT
  Age: 57 Year
  Sex: Male
  Weight: 105 kg

DRUGS (5)
  1. LEVITRA [Suspect]
     Indication: MUSCLE RIGIDITY
     Route: 048
     Dates: start: 20070218
  2. LEVITRA [Suspect]
     Route: 048
  3. FELDENE [Concomitant]
  4. ASPIRIN [Concomitant]
  5. LISINOPRIL [Concomitant]

REACTIONS (8)
  - CYANOPSIA [None]
  - DIZZINESS [None]
  - FACIAL PAIN [None]
  - FATIGUE [None]
  - LETHARGY [None]
  - NASAL CONGESTION [None]
  - PHOTOPHOBIA [None]
  - SINUS HEADACHE [None]
